FAERS Safety Report 10345307 (Version 2)
Quarter: 2015Q4

REPORT INFORMATION
  Report Type: Report from Study
  Country: JP (occurrence: JP)
  Receive Date: 20140728
  Receipt Date: 20151016
  Transmission Date: 20160304
  Serious: Yes (Death, Life-Threatening)
  Sender: FDA-Public Use
  Company Number: JP-SA-2014SA099425

PATIENT
  Age: 61 Year
  Sex: Female
  Weight: 28 kg

DRUGS (11)
  1. CIPROXAN [Concomitant]
     Active Substance: CIPROFLOXACIN
     Indication: INFECTION PROPHYLAXIS
     Dates: start: 20121208, end: 20130115
  2. SOLU-MEDROL [Concomitant]
     Active Substance: METHYLPREDNISOLONE SODIUM SUCCINATE
     Indication: PROPHYLAXIS AGAINST GRAFT VERSUS HOST DISEASE
     Dates: start: 20121214, end: 20130118
  3. THYMOGLOBULINE [Suspect]
     Active Substance: LAPINE T-LYMPHOCYTE IMMUNE GLOBULIN
     Indication: BONE MARROW CONDITIONING REGIMEN
     Route: 042
     Dates: start: 20121214, end: 20121214
  4. VICCLOX [Concomitant]
     Active Substance: ACYCLOVIR SODIUM
     Indication: ANTIVIRAL PROPHYLAXIS
     Dates: start: 20121210, end: 20130126
  5. GRAN [Concomitant]
     Active Substance: FILGRASTIM
     Indication: MYELODYSPLASTIC SYNDROME
     Dates: start: 20130115, end: 20130217
  6. FRAGMIN [Concomitant]
     Active Substance: DALTEPARIN SODIUM
     Indication: PROPHYLAXIS
     Dates: start: 20121211, end: 20130114
  7. PROGRAF [Concomitant]
     Active Substance: TACROLIMUS\TACROLIMUS ANHYDROUS
     Indication: PROPHYLAXIS AGAINST GRAFT VERSUS HOST DISEASE
     Dates: start: 20121213, end: 20130321
  8. THYMOGLOBULINE [Suspect]
     Active Substance: LAPINE T-LYMPHOCYTE IMMUNE GLOBULIN
     Indication: BONE MARROW CONDITIONING REGIMEN
     Route: 042
     Dates: start: 20121215, end: 20121216
  9. PREDONINE [Concomitant]
     Active Substance: PREDNISOLONE\PREDNISOLONE ACETATE\PREDNISOLONE SODIUM SUCCINATE
     Indication: PROPHYLAXIS AGAINST GRAFT VERSUS HOST DISEASE
     Dates: start: 20130119, end: 20130215
  10. VFEND [Concomitant]
     Active Substance: VORICONAZOLE
     Indication: INFECTION PROPHYLAXIS
     Dates: start: 20121208, end: 20130319
  11. PARIET [Concomitant]
     Active Substance: RABEPRAZOLE SODIUM
     Indication: PROPHYLAXIS AGAINST GASTROINTESTINAL ULCER
     Dates: start: 20121208, end: 20130319

REACTIONS (4)
  - Myelodysplastic syndrome [Fatal]
  - Cytomegalovirus viraemia [Recovered/Resolved]
  - Decreased appetite [Recovered/Resolved]
  - Febrile neutropenia [Not Recovered/Not Resolved]

NARRATIVE: CASE EVENT DATE: 20121217
